FAERS Safety Report 5585672-0 (Version None)
Quarter: 2008Q1

REPORT INFORMATION
  Report Type: 
  Country: None (occurrence: None)
  Receive Date: 20080109
  Receipt Date: 20080102
  Transmission Date: 20080703
  Serious: Yes (Other)
  Sender: FDA-Public Use
  Company Number: US-JNJFOC-20080100795

PATIENT
  Sex: Male
  Weight: 136.08 kg

DRUGS (4)
  1. FENTANYL TRANSDERMAL SYSTEM [Suspect]
     Indication: INTERVERTEBRAL DISC PROTRUSION
     Route: 062
  2. HYDROCODONE [Suspect]
     Indication: PAIN
     Dosage: 3-5 TABLETS AS NEEDED
     Route: 048
  3. WELLBUTRIN SR [Concomitant]
     Indication: ANXIETY
     Route: 048
  4. WELLBUTRIN SR [Concomitant]
     Indication: DEPRESSION
     Route: 048

REACTIONS (5)
  - DRUG INEFFECTIVE [None]
  - GASTRIC DISORDER [None]
  - HAEMATEMESIS [None]
  - HAEMATOCHEZIA [None]
  - INAPPROPRIATE SCHEDULE OF DRUG ADMINISTRATION [None]
